FAERS Safety Report 6981155-1 (Version None)
Quarter: 2010Q3

REPORT INFORMATION
  Report Type: 
  Country: None (occurrence: None)
  Receive Date: 20100914
  Receipt Date: 20100831
  Transmission Date: 20110219
  Serious: Yes (Other)
  Sender: FDA-Public Use
  Company Number: IL-JNJFOC-20100903655

PATIENT
  Age: 11 Year
  Sex: Male

DRUGS (2)
  1. RISPERIDONE [Suspect]
     Indication: SCHIZOPHRENIFORM DISORDER
     Route: 065
  2. RISPERIDONE [Suspect]
     Route: 065

REACTIONS (2)
  - BLOOD GROWTH HORMONE DECREASED [None]
  - HYPERPROLACTINAEMIA [None]
